FAERS Safety Report 21772747 (Version 2)
Quarter: 2023Q1

REPORT INFORMATION
  Report Type: Spontaneous
  Country: US (occurrence: None)
  Receive Date: 20221223
  Receipt Date: 20230109
  Transmission Date: 20230418
  Serious: No
  Sender: FDA-Public Use
  Company Number: 2022A413339

PATIENT

DRUGS (1)
  1. BUDESONIDE\FORMOTEROL\GLYCOPYRRONIUM [Suspect]
     Active Substance: BUDESONIDE\FORMOTEROL\GLYCOPYRRONIUM
     Indication: COVID-19
     Dosage: UNKNOWN
     Route: 055

REACTIONS (4)
  - Dyspnoea [Unknown]
  - Cough [Unknown]
  - Off label use [Unknown]
  - Drug ineffective [Unknown]
